FAERS Safety Report 5703748-1 (Version None)
Quarter: 2008Q2

REPORT INFORMATION
  Report Type: 
  Country: None (occurrence: None)
  Receive Date: 20080413
  Receipt Date: 20080404
  Transmission Date: 20081010
  Serious: Yes (Other)
  Sender: FDA-Public Use
  Company Number: PHBS2008IT03946

PATIENT
  Age: 68 Year
  Sex: Female

DRUGS (2)
  1. CYCLOSPORINE [Suspect]
     Indication: STEM CELL TRANSPLANT
  2. STEROIDS NOS [Concomitant]
     Indication: STEM CELL TRANSPLANT

REACTIONS (8)
  - BLOOD ALBUMIN DECREASED [None]
  - CREATININE RENAL CLEARANCE DECREASED [None]
  - GLOMERULONEPHRITIS MEMBRANOUS [None]
  - HYPERTENSIVE CRISIS [None]
  - NEPHROPATHY TOXIC [None]
  - NEPHROTIC SYNDROME [None]
  - PROTEINURIA [None]
  - RENAL IMPAIRMENT [None]
